FAERS Safety Report 9539393 (Version 9)
Quarter: 2016Q3

REPORT INFORMATION
  Report Type: Report from Study
  Country: US (occurrence: US)
  Receive Date: 20130920
  Receipt Date: 20160909
  Transmission Date: 20161109
  Serious: Yes (Hospitalization, Other)
  Sender: FDA-Public Use
  Company Number: US-SANOFI-AVENTIS-2013SA032755

PATIENT
  Age: 42 Year
  Sex: Female

DRUGS (11)
  1. COUMADIN [Concomitant]
     Active Substance: WARFARIN SODIUM
  2. AUBAGIO [Suspect]
     Active Substance: TERIFLUNOMIDE
     Indication: MULTIPLE SCLEROSIS
     Route: 048
     Dates: start: 20130408
  3. PRILOSEC [Concomitant]
     Active Substance: OMEPRAZOLE MAGNESIUM
  4. AUBAGIO [Suspect]
     Active Substance: TERIFLUNOMIDE
     Indication: MULTIPLE SCLEROSIS
     Route: 048
     Dates: start: 20130306, end: 20130324
  5. AUBAGIO [Suspect]
     Active Substance: TERIFLUNOMIDE
     Indication: MULTIPLE SCLEROSIS
     Route: 048
     Dates: start: 20130408
  6. AUBAGIO [Suspect]
     Active Substance: TERIFLUNOMIDE
     Indication: MULTIPLE SCLEROSIS
     Route: 048
     Dates: start: 20130408
  7. CYMBALTA [Concomitant]
     Active Substance: DULOXETINE HYDROCHLORIDE
  8. AUBAGIO [Suspect]
     Active Substance: TERIFLUNOMIDE
     Indication: MULTIPLE SCLEROSIS
     Route: 048
     Dates: start: 20130306, end: 20130324
  9. LIORESAL [Concomitant]
     Active Substance: BACLOFEN
  10. AUBAGIO [Suspect]
     Active Substance: TERIFLUNOMIDE
     Indication: MULTIPLE SCLEROSIS
     Route: 048
     Dates: start: 2016
  11. PROVIGIL [Concomitant]
     Active Substance: MODAFINIL

REACTIONS (19)
  - Cognitive disorder [Unknown]
  - Urinary tract infection [Unknown]
  - Repetitive speech [Unknown]
  - Staphylococcal infection [Not Recovered/Not Resolved]
  - Malaise [Not Recovered/Not Resolved]
  - Diarrhoea [Unknown]
  - Catheter site haemorrhage [Unknown]
  - Speech disorder [Not Recovered/Not Resolved]
  - Muscular weakness [Unknown]
  - Eye disorder [Unknown]
  - Cystitis [Unknown]
  - Confusional state [Not Recovered/Not Resolved]
  - Calculus bladder [Unknown]
  - Dyskinesia [Unknown]
  - Unevaluable event [Unknown]
  - Derealisation [Unknown]
  - Central nervous system lesion [Unknown]
  - Condition aggravated [Unknown]
  - Clostridium difficile infection [Unknown]

NARRATIVE: CASE EVENT DATE: 20130324
